FAERS Safety Report 4701082-X (Version None)
Quarter: 2005Q2

REPORT INFORMATION
  Report Type: 
  Country: None (occurrence: None)
  Receive Date: 20050624
  Receipt Date: 20050613
  Transmission Date: 20051028
  Serious: Yes (Other)
  Sender: FDA-Public Use
  Company Number: 2005088979

PATIENT

DRUGS (2)
  1. VFEND (VORICINAZOLE) [Suspect]
     Indication: ILL-DEFINED DISORDER
     Dosage: INTRAVENOUS
     Route: 042
  2. MINOCIN [Concomitant]

REACTIONS (2)
  - LABORATORY TEST ABNORMAL [None]
  - LIVER DISORDER [None]
